FAERS Safety Report 8078509-1 (Version None)
Quarter: 2012Q1

REPORT INFORMATION
  Report Type: 
  Country: None (occurrence: None)
  Receive Date: 20120127
  Receipt Date: 20120127
  Transmission Date: 20120608
  Serious: No
  Sender: FDA-Public Use
  Company Number: None

PATIENT
  Age: 35 Year
  Sex: Male
  Weight: 134.2 kg

DRUGS (1)
  1. LAMOTRIGINE [Suspect]
     Indication: AFFECTIVE DISORDER
     Dosage: 50 MG EVERY DAY PO
     Route: 048
     Dates: start: 20110422, end: 20110424

REACTIONS (6)
  - URTICARIA [None]
  - TACHYCARDIA [None]
  - HEADACHE [None]
  - PALPITATIONS [None]
  - RASH MACULAR [None]
  - PRURITUS [None]
